FAERS Safety Report 7557615-1 (Version None)
Quarter: 2011Q2

REPORT INFORMATION
  Report Type: 
  Country: None (occurrence: None)
  Receive Date: 20110620
  Receipt Date: 20110613
  Transmission Date: 20111010
  Serious: Yes (Hospitalization)
  Sender: FDA-Public Use
  Company Number: JP-ABBOTT-11P-087-0732882-00

PATIENT
  Age: 3 Year
  Sex: Female

DRUGS (6)
  1. TULOBUTEROL [Concomitant]
     Indication: BRONCHITIS
     Route: 048
  2. CLARITHROMYCIN [Suspect]
     Indication: PNEUMONIA
     Route: 048
     Dates: start: 20110609, end: 20110609
  3. MUCODYNE-DS [Concomitant]
     Indication: BRONCHITIS
     Route: 048
  4. ONON [Concomitant]
     Indication: HYPERSENSITIVITY
     Dosage: D
     Route: 048
  5. HOKUNALIN [Concomitant]
     Indication: BRONCHITIS
     Route: 061
  6. ANTIBIOTICS-RESISTANT LACTIC ACID BACTERIAE [Concomitant]
     Indication: GASTROINTESTINAL DISORDER
     Route: 048

REACTIONS (2)
  - URTICARIA [None]
  - CONJUNCTIVAL HAEMORRHAGE [None]
